FAERS Safety Report 9001167 (Version 1)
Quarter: 2013Q1

REPORT INFORMATION
  Report Type: Spontaneous
  Country: BR (occurrence: BR)
  Receive Date: 20130107
  Receipt Date: 20130107
  Transmission Date: 20140127
  Serious: Yes (Death)
  Sender: FDA-Public Use
  Company Number: PHHY2013BR001261

PATIENT
  Sex: Female

DRUGS (10)
  1. FORASEQ [Suspect]
  2. CATAFLAM [Suspect]
  3. WHEAT DEXTRIN [Suspect]
  4. NICOTINELL TTS 10 [Suspect]
  5. VENORUTON [Suspect]
  6. CALSAN [Suspect]
  7. CALCIUM D3 [Suspect]
  8. CALCIUM [Suspect]
  9. CALCIUM VITAMIN C [Suspect]
  10. CALCIUM [Suspect]

REACTIONS (2)
  - Cardiovascular disorder [Fatal]
  - Dyspnoea [Unknown]
